FAERS Safety Report 9210817 (Version 2)
Quarter: 2013Q3

REPORT INFORMATION
  Report Type: Spontaneous
  Country: KR (occurrence: KR)
  Receive Date: 20130404
  Receipt Date: 20130710
  Transmission Date: 20140515
  Serious: Yes (Other)
  Sender: FDA-Public Use
  Company Number: KR-ELI_LILLY_AND_COMPANY-KR201304000561

PATIENT
  Age: 59 Year
  Sex: Male

DRUGS (3)
  1. GEMCITABINE HYDROCHLORIDE [Suspect]
     Indication: NON-SMALL CELL LUNG CANCER METASTATIC
     Dosage: 1250 MG/M2, OTHER
     Dates: start: 20060811
  2. CISPLATIN [Concomitant]
     Indication: NON-SMALL CELL LUNG CANCER METASTATIC
     Dosage: 60 MG/M2, UNKNOWN
     Dates: start: 20060811
  3. CODEINE [Concomitant]
     Dosage: 20 MG, TID

REACTIONS (2)
  - Hepatitis [Recovered/Resolved]
  - Cholelithiasis [Unknown]
